FAERS Safety Report 4891166-8 (Version None)
Quarter: 2006Q1

REPORT INFORMATION
  Report Type: 
  Country: None (occurrence: None)
  Receive Date: 20060125
  Receipt Date: 20051215
  Transmission Date: 20060701
  Serious: Yes (Other)
  Sender: FDA-Public Use
  Company Number: US-GLAXOSMITHKLINE-A0585957A

PATIENT
  Age: 15 Year
  Sex: Male

DRUGS (1)
  1. LAMICTAL [Suspect]
     Indication: EPILEPSY
     Route: 048
     Dates: start: 20050520, end: 20050101

REACTIONS (4)
  - FACIAL PAIN [None]
  - MOUTH ULCERATION [None]
  - PAIN IN EXTREMITY [None]
  - PSYCHOTIC DISORDER [None]
